FAERS Safety Report 7868215-8 (Version None)
Quarter: 2011Q4

REPORT INFORMATION
  Report Type: 
  Country: None (occurrence: None)
  Receive Date: 20111028
  Receipt Date: 20111018
  Transmission Date: 20120403
  Serious: Yes (Hospitalization, Disabling, Other)
  Sender: FDA-Public Use
  Company Number: US-MERCK-1010USA03220

PATIENT
  Age: 61 Year
  Sex: Female

DRUGS (1)
  1. FOSAMAX [Suspect]
     Indication: OSTEOPENIA
     Route: 048
     Dates: start: 20020825, end: 20091213

REACTIONS (12)
  - MUSCULOSKELETAL PAIN [None]
  - FRACTURE [None]
  - FALL [None]
  - ARTHROPATHY [None]
  - MUSCULOSKELETAL DISORDER [None]
  - SCOLIOSIS [None]
  - ASTHENIA [None]
  - BACK PAIN [None]
  - DIZZINESS [None]
  - FEMUR FRACTURE [None]
  - PAIN [None]
  - BACK INJURY [None]
